FAERS Safety Report 9317541 (Version 2)
Quarter: 2013Q2

REPORT INFORMATION
  Report Type: Spontaneous
  Country: GR (occurrence: GR)
  Receive Date: 20130530
  Receipt Date: 20130605
  Transmission Date: 20140414
  Serious: Yes (Other)
  Sender: FDA-Public Use
  Company Number: GR-NOVOPROD-378665

PATIENT
  Age: 52 Year
  Sex: Female
  Weight: 120 kg

DRUGS (9)
  1. VICTOZA [Suspect]
     Indication: TYPE 2 DIABETES MELLITUS
     Dosage: 1.2 MG, QD
     Route: 058
     Dates: start: 20130422, end: 20130515
  2. VICTOZA [Suspect]
     Dosage: UNK
     Dates: start: 20130528
  3. METFORMIN [Suspect]
     Indication: PRODUCT USED FOR UNKNOWN INDICATION
     Dosage: UNK
     Route: 065
  4. LIPITOR [Concomitant]
  5. LOPRESSOR [Concomitant]
  6. PLAVIX [Concomitant]
  7. DOGMATYL [Concomitant]
  8. ENTACT [Concomitant]
  9. COPALIA [Concomitant]

REACTIONS (2)
  - Dizziness [Recovered/Resolved]
  - Abdominal pain [Recovered/Resolved]
